FAERS Safety Report 24163843 (Version 1)
Quarter: 2024Q3

REPORT INFORMATION
  Report Type: Report from Study
  Country: CA (occurrence: CA)
  Receive Date: 20240801
  Receipt Date: 20240801
  Transmission Date: 20241017
  Serious: Yes (Other)
  Sender: AMARIN
  Company Number: CA-Amarin Pharma  Inc-2024AMR000364

PATIENT
  Age: 69 Year
  Sex: Male

DRUGS (1)
  1. VASCEPA [Suspect]
     Active Substance: ICOSAPENT ETHYL
     Indication: Product used for unknown indication
     Dates: start: 20240418, end: 2024

REACTIONS (2)
  - Peripheral artery occlusion [Unknown]
  - Surgery [Unknown]

NARRATIVE: CASE EVENT DATE: 20240101
